FAERS Safety Report 10936581 (Version 1)
Quarter: 2015Q1

REPORT INFORMATION
  Report Type: Spontaneous
  Country: US (occurrence: None)
  Receive Date: 20150320
  Receipt Date: 20150320
  Transmission Date: 20150721
  Serious: Yes (Hospitalization, Other)
  Sender: FDA-Public Use
  Company Number: None

PATIENT
  Age: 60 Year
  Sex: Male
  Weight: 115.21 kg

DRUGS (9)
  1. ATORVASTATIN [Concomitant]
     Active Substance: ATORVASTATIN
  2. PANTOPRAZOLE [Concomitant]
     Active Substance: PANTOPRAZOLE SODIUM
  3. CLOZAPINE. [Suspect]
     Active Substance: CLOZAPINE
     Indication: SCHIZOPHRENIA
     Dosage: 2 TABLETS 0.5 TAB AM; 1.5 PM 5-6 YEARS
     Route: 048
  4. PIOGLITAZONE [Concomitant]
     Active Substance: PIOGLITAZONE
  5. ALLOPURINOL. [Concomitant]
     Active Substance: ALLOPURINOL
  6. CLOZAPINE. [Concomitant]
     Active Substance: CLOZAPINE
  7. OLANZAPINE. [Concomitant]
     Active Substance: OLANZAPINE
  8. LORATADINE. [Concomitant]
     Active Substance: LORATADINE
  9. METFORMIN [Concomitant]
     Active Substance: METFORMIN HYDROCHLORIDE

REACTIONS (4)
  - Small intestinal obstruction [None]
  - Vomiting [None]
  - Postoperative ileus [None]
  - Nausea [None]

NARRATIVE: CASE EVENT DATE: 20150305
